FAERS Safety Report 8762384 (Version 1)
Quarter: 2012Q4

REPORT INFORMATION
  Report Type: 
  Country: US (occurrence: US)
  Receive Date: 20120830
  Receipt Date: 20120830
  Transmission Date: 20130627
  Serious: No
  Sender: FDA-Public Use
  Company Number: US-PFIZER INC-2012211623

PATIENT
  Age: 62 Year
  Sex: Female
  Weight: 99.77 kg

DRUGS (7)
  1. LYRICA [Suspect]
     Indication: NEURALGIA
     Dosage: 50 mg, 2x/day
     Route: 048
     Dates: start: 201206, end: 201208
  2. LYRICA [Suspect]
     Dosage: 75 mg, 2x/week
     Dates: start: 201208
  3. LISINOPRIL [Concomitant]
     Indication: HYPERTENSION
     Dosage: 10 mg, 1x/day
  4. METOPROLOL [Concomitant]
     Indication: HYPERTENSION
     Dosage: 50 mg, 2x/day
  5. PRAVASTATIN [Concomitant]
     Indication: BLOOD CHOLESTEROL INCREASED
     Dosage: 40 mg, 1x/day
  6. PAROXETINE [Concomitant]
     Dosage: 30 mg, 1x/day
  7. ANASTROZOLE [Concomitant]
     Indication: BREAST CANCER
     Dosage: 1 mg, 1x/day

REACTIONS (1)
  - Alopecia [Not Recovered/Not Resolved]
